FAERS Safety Report 8983275 (Version 2)
Quarter: 2013Q1

REPORT INFORMATION
  Report Type: Spontaneous
  Country: IL (occurrence: IL)
  Receive Date: 20121224
  Receipt Date: 20130114
  Transmission Date: 20140127
  Serious: Yes (Death, Hospitalization, Other)
  Sender: FDA-Public Use
  Company Number: PHHY2012IL024495

PATIENT
  Age: 57 Year
  Sex: Female

DRUGS (3)
  1. SANDOSTATIN LAR [Suspect]
     Indication: CARCINOID TUMOUR
     Dosage: 60 MG, EVERY 28 DAYS
     Dates: start: 20091203, end: 20120130
  2. SANDOSTATIN LAR [Suspect]
     Dosage: 60 MG, EVERY 2 WEEKS
     Dates: start: 20121129
  3. SANDOSTATIN LAR [Suspect]
     Dosage: 60 MG, EVERY 2 WEEKS
     Dates: start: 20130103

REACTIONS (8)
  - Death [Fatal]
  - Pelvic pain [Unknown]
  - Pain [Unknown]
  - Malignant neoplasm progression [Not Recovered/Not Resolved]
  - Metastases to spine [Unknown]
  - General physical health deterioration [Unknown]
  - Feeling abnormal [Unknown]
  - Asthenia [Unknown]
